FAERS Safety Report 9992620 (Version 1)
Quarter: 2014Q1

REPORT INFORMATION
  Report Type: Spontaneous
  Country: US (occurrence: US)
  Receive Date: 20140310
  Receipt Date: 20140310
  Transmission Date: 20141002
  Serious: No
  Sender: FDA-Public Use
  Company Number: US-PFIZER INC-2014068507

PATIENT
  Age: 41 Year
  Sex: Female

DRUGS (1)
  1. XELJANZ [Suspect]
     Dosage: UNK
     Dates: start: 20140303, end: 201403

REACTIONS (5)
  - Nausea [Unknown]
  - Dizziness [Unknown]
  - Activities of daily living impaired [Unknown]
  - Throat irritation [Unknown]
  - Dyspepsia [Unknown]
